FAERS Safety Report 4922292-2 (Version None)
Quarter: 2006Q1

REPORT INFORMATION
  Report Type: 
  Country: None (occurrence: None)
  Receive Date: 20060224
  Receipt Date: 20050823
  Transmission Date: 20060701
  Serious: Yes (Death, Other)
  Sender: FDA-Public Use
  Company Number: US-MERCK-0508USA03900

PATIENT
  Age: 69 Year
  Sex: Male
  Weight: 86 kg

DRUGS (3)
  1. VIOXX [Suspect]
     Indication: PAIN IN EXTREMITY
     Route: 048
     Dates: start: 20010301, end: 20030101
  2. [THERAPY UNSPECIFIED] [Concomitant]
     Indication: BLOOD PRESSURE ABNORMAL
     Route: 065
  3. [THERAPY UNSPECIFIED] [Concomitant]
     Indication: ANTICOAGULANT THERAPY
     Route: 065

REACTIONS (2)
  - DEATH [None]
  - MYOCARDIAL INFARCTION [None]
